FAERS Safety Report 15413045 (Version 1)
Quarter: 2018Q3

REPORT INFORMATION
  Report Type: Report from Study
  Country: US (occurrence: US)
  Receive Date: 20180921
  Receipt Date: 20180921
  Transmission Date: 20181010
  Serious: Yes (Death, Hospitalization, Other)
  Sender: FDA-Public Use
  Company Number: US-SA-2018SA261624

PATIENT
  Age: 73 Year
  Sex: Female

DRUGS (2)
  1. NO STUDY DRUG GIVEN [Suspect]
     Active Substance: UNSPECIFIED INGREDIENT
     Dosage: UNK UNK, UNK
  2. MULTAQ [Suspect]
     Active Substance: DRONEDARONE
     Indication: ATRIAL FIBRILLATION
     Dosage: 400 MG, BID
     Route: 048

REACTIONS (19)
  - Acute respiratory failure [Unknown]
  - Pulmonary oedema [Unknown]
  - Stent placement [Unknown]
  - Coronary artery disease [Unknown]
  - Confusional state [Unknown]
  - Cardiac arrest [Fatal]
  - Cardiac failure congestive [Unknown]
  - Hypertensive emergency [Unknown]
  - Hypertension [Unknown]
  - Atrial fibrillation [Unknown]
  - Blood pressure fluctuation [Unknown]
  - Heart rate decreased [Unknown]
  - Respiration abnormal [Unknown]
  - Dyspnoea [Unknown]
  - Blood lactic acid increased [Unknown]
  - Unresponsive to stimuli [Unknown]
  - Hyperlipidaemia [Unknown]
  - Cerebrovascular accident [Unknown]
  - Cardiovascular disorder [Unknown]

NARRATIVE: CASE EVENT DATE: 20160615
